FAERS Safety Report 17139351 (Version 1)
Quarter: 2019Q4

REPORT INFORMATION
  Report Type: Spontaneous
  Country: US (occurrence: US)
  Receive Date: 20191210
  Receipt Date: 20191210
  Transmission Date: 20200122
  Serious: Yes (Life-Threatening, Hospitalization, Disabling)
  Sender: FDA-Public Use
  Company Number: None

PATIENT
  Age: 34 Year
  Sex: Female
  Weight: 99 kg

DRUGS (1)
  1. CEFDINIR. [Suspect]
     Active Substance: CEFDINIR
     Indication: EAR INFECTION
     Route: 048
     Dates: start: 20161216, end: 20161223

REACTIONS (1)
  - Stevens-Johnson syndrome [None]

NARRATIVE: CASE EVENT DATE: 20161230
